FAERS Safety Report 4657176-0 (Version None)
Quarter: 2005Q2

REPORT INFORMATION
  Report Type: 
  Country: None (occurrence: None)
  Receive Date: 20050506
  Receipt Date: 20050422
  Transmission Date: 20051028
  Serious: Yes (Hospitalization)
  Sender: FDA-Public Use
  Company Number: L05-USA-01563-04

PATIENT
  Age: 73 Year
  Sex: Female

DRUGS (7)
  1. DILTIAZEM [Suspect]
     Dosage: 120 MG QD
  2. ATENOLOL [Suspect]
     Dosage: 25 MG QD
  3. ATENOLOL [Suspect]
     Dosage: 50 MG QD
  4. CANDESARTAN [Suspect]
     Dosage: 32 MG QD
  5. FUROSEMIDE [Suspect]
  6. METOLAZONE [Suspect]
  7. ISOSORBIDE MONONTRATE [Suspect]

REACTIONS (4)
  - BLOOD CREATININE INCREASED [None]
  - BLOOD POTASSIUM INCREASED [None]
  - NODAL ARRHYTHMIA [None]
  - SINUS ARREST [None]
